FAERS Safety Report 4620684-2 (Version None)
Quarter: 2005Q1

REPORT INFORMATION
  Report Type: 
  Country: None (occurrence: None)
  Receive Date: 20050325
  Receipt Date: 20050310
  Transmission Date: 20050727
  Serious: Yes (Other)
  Sender: FDA-Public Use
  Company Number: TRP_0082_2005

PATIENT
  Age: 54 Year
  Sex: Male
  Weight: 98.8842 kg

DRUGS (5)
  1. RIBASPHERE [Suspect]
     Indication: HEPATITIS C
     Dosage: 1000 MG QDAY PO
     Route: 048
     Dates: start: 20041022
  2. PEG-INTRON [Suspect]
     Indication: HEPATITIS C
     Dosage: 150 MCG QWK SC
     Route: 058
     Dates: start: 20041022
  3. ALLEGRA [Concomitant]
  4. ARTHROTEC [Concomitant]
  5. CLONAZEPAM [Concomitant]

REACTIONS (3)
  - CEREBRAL DISORDER [None]
  - FALL [None]
  - LACUNAR INFARCTION [None]
